FAERS Safety Report 8301482-5 (Version None)
Quarter: 2012Q2

REPORT INFORMATION
  Report Type: 
  Country: None (occurrence: None)
  Receive Date: 20120420
  Receipt Date: 20120413
  Transmission Date: 20120825
  Serious: Yes (Other)
  Sender: FDA-Public Use
  Company Number: PHHY2012DE015998

PATIENT
  Sex: Male

DRUGS (6)
  1. DYNORM PLUS [Concomitant]
  2. EZETIMIBE [Concomitant]
  3. BETA BLOCKING AGENTS [Concomitant]
  4. EXFORGE [Suspect]
     Indication: HYPERTENSION
     Dosage: 1 DF (160 MG VALSAR AND 5 MG AMLO), UNK
  5. RASILEZ [Suspect]
     Indication: HYPERTENSION
     Dosage: 2 DF, QD
  6. RASILEZ [Suspect]
     Dosage: 1 DF, QD

REACTIONS (12)
  - RENAL IMPAIRMENT [None]
  - CONSTIPATION [None]
  - BLOOD PRESSURE INCREASED [None]
  - DYSPNOEA [None]
  - HYPOAESTHESIA [None]
  - CARDIAC HYPERTROPHY [None]
  - DISCOMFORT [None]
  - MYALGIA [None]
  - BLOOD CHOLESTEROL INCREASED [None]
  - BLOOD GLUCOSE INCREASED [None]
  - ARTHRALGIA [None]
  - LIVER FUNCTION TEST ABNORMAL [None]
